FAERS Safety Report 10179836 (Version 1)
Quarter: 2014Q2

REPORT INFORMATION
  Report Type: Spontaneous
  Country: US (occurrence: US)
  Receive Date: 20140519
  Receipt Date: 20140519
  Transmission Date: 20141212
  Serious: No
  Sender: FDA-Public Use
  Company Number: US-AMGEN INC.-USASP2014000340

PATIENT
  Age: 49 Year
  Sex: Female

DRUGS (4)
  1. PROLIA [Suspect]
     Indication: OSTEOPOROSIS POSTMENOPAUSAL
     Dosage: UNK
     Route: 065
  2. PREMARIN [Concomitant]
     Dosage: 0.625 MG, UNK
  3. ENABLEX [Concomitant]
     Dosage: 7.5 MG, UNK
  4. CALCIUM [Concomitant]

REACTIONS (3)
  - Blood pressure increased [Unknown]
  - Arthralgia [Recovered/Resolved]
  - Musculoskeletal pain [Recovered/Resolved]
